FAERS Safety Report 22085456 (Version 4)
Quarter: 2023Q2

REPORT INFORMATION
  Report Type: Report from Study
  Country: US (occurrence: None)
  Receive Date: 20230310
  Receipt Date: 20230411
  Transmission Date: 20230721
  Serious: Yes (Hospitalization, Other)
  Sender: FDA-Public Use
  Company Number: US-ROCHE-3289155

PATIENT
  Age: 70 Year
  Sex: Male

DRUGS (7)
  1. ATEZOLIZUMAB [Suspect]
     Active Substance: ATEZOLIZUMAB
     Indication: Pancreatic carcinoma
     Dosage: CUMULATIVE DOSE 1680 MG
     Route: 041
     Dates: start: 20230126
  2. GEMCITABINE [Concomitant]
     Active Substance: GEMCITABINE
     Route: 065
     Dates: start: 20230126, end: 20230202
  3. ABRAXANE [Concomitant]
     Active Substance: PACLITAXEL
     Dosage: NAB-PACLITAXEL
     Route: 065
     Dates: start: 20230126, end: 20230202
  4. ZOSYN [Concomitant]
     Active Substance: PIPERACILLIN SODIUM\TAZOBACTAM SODIUM
     Dosage: ZOSYN (PIPERACILLIN SODIUM AND TAZOBACTAM SODIUM) 3.375 G IV FROM 05/FEB/2023 TO 05/FEB/2023
     Route: 042
     Dates: start: 20230204
  5. MEROPENEM [Concomitant]
     Active Substance: MEROPENEM
     Route: 042
     Dates: start: 20230205, end: 20230207
  6. LEVAQUIN [Concomitant]
     Active Substance: LEVOFLOXACIN
     Route: 048
     Dates: start: 20230207
  7. METRONIDAZOLE [Concomitant]
     Active Substance: METRONIDAZOLE
     Route: 048
     Dates: start: 20230207

REACTIONS (4)
  - Biliary obstruction [Recovered/Resolved]
  - Cholangitis [Recovered/Resolved]
  - Acute kidney injury [Recovered/Resolved with Sequelae]
  - Blood creatinine increased [Not Recovered/Not Resolved]

NARRATIVE: CASE EVENT DATE: 20230204
